FAERS Safety Report 5529672-5 (Version None)
Quarter: 2007Q4

REPORT INFORMATION
  Report Type: 
  Country: None (occurrence: None)
  Receive Date: 20071127
  Receipt Date: 20071116
  Transmission Date: 20080405
  Serious: Yes (Death, Other)
  Sender: FDA-Public Use
  Company Number: 2007BI019509

PATIENT
  Sex: Male

DRUGS (1)
  1. AVONEX [Suspect]

REACTIONS (1)
  - AORTIC ANEURYSM [None]
